FAERS Safety Report 8516966 (Version 3)
Quarter: 2015Q1

REPORT INFORMATION
  Report Type: Spontaneous
  Country: JP (occurrence: JP)
  Receive Date: 20120417
  Receipt Date: 20150325
  Transmission Date: 20150721
  Serious: Yes (Other)
  Sender: FDA-Public Use
  Company Number: JP-PFIZER INC-2012025037

PATIENT
  Age: 78 Year
  Sex: Male
  Weight: 53 kg

DRUGS (15)
  1. BIAPENEM [Concomitant]
     Active Substance: BIAPENEM
     Indication: ENDOCARDITIS
     Dosage: 0.3 G, 3X/DAY
     Route: 041
     Dates: start: 20111213, end: 20120106
  2. LASIX [Concomitant]
     Active Substance: FUROSEMIDE
     Dosage: 20 MG, DAILY
     Dates: start: 20111210, end: 20111214
  3. ALDACTONE [Concomitant]
     Active Substance: SPIRONOLACTONE
     Dosage: 50 MG DAILY
     Dates: start: 20111215
  4. AZUCURENIN S [Concomitant]
     Active Substance: GLUTAMINE
     Dosage: 2 G, DAILY
     Dates: end: 20111226
  5. ARTIST [Concomitant]
     Active Substance: CARVEDILOL
     Dosage: 2.5 MG, DAILY
  6. SUNRYTHM [Concomitant]
     Active Substance: PILSICAINIDE HYDROCHLORIDE
     Dosage: 150 MG, DAILY
     Dates: end: 20111211
  7. PARIET [Concomitant]
     Active Substance: RABEPRAZOLE SODIUM
     Dosage: 10 MG, DAILY
     Dates: start: 20111209
  8. SUNRYTHM [Concomitant]
     Active Substance: PILSICAINIDE HYDROCHLORIDE
     Dosage: 150 MG, DAILY
     Dates: start: 20111220
  9. LASIX [Concomitant]
     Active Substance: FUROSEMIDE
     Dosage: 60 MG, DAILY
     Dates: start: 20111215, end: 20111227
  10. LASIX [Concomitant]
     Active Substance: FUROSEMIDE
     Dosage: 40 MG, DAILY
     Dates: start: 20111228, end: 20111228
  11. ALDACTONE [Concomitant]
     Active Substance: SPIRONOLACTONE
     Dosage: 25 MG, DAILY
     Dates: start: 20111210, end: 20111214
  12. MIYA-BM [Concomitant]
     Active Substance: CLOSTRIDIUM BUTYRICUM SPORES STRAIN M-55
     Dosage: 3 G, UNK
     Dates: end: 20111226
  13. WARFARIN [Interacting]
     Active Substance: WARFARIN
     Dosage: 2 MG, DAILY
     Route: 048
     Dates: start: 20111207, end: 20120127
  14. ZYVOX [Suspect]
     Active Substance: LINEZOLID
     Indication: ENDOCARDITIS
     Dosage: 600 MG, 2X/DAY
     Route: 041
     Dates: start: 20111213, end: 20111221
  15. NU LOTAN [Concomitant]
     Active Substance: LOSARTAN
     Dosage: 25 MG, DAILY

REACTIONS (4)
  - Platelet count decreased [Recovered/Resolved]
  - International normalised ratio increased [Recovered/Resolved]
  - Drug interaction [Recovered/Resolved]
  - Off label use [Unknown]

NARRATIVE: CASE EVENT DATE: 20111213
